FAERS Safety Report 16149241 (Version 1)
Quarter: 2019Q2

REPORT INFORMATION
  Report Type: Spontaneous
  Country: US (occurrence: US)
  Receive Date: 20190402
  Receipt Date: 20190402
  Transmission Date: 20190711
  Serious: Yes (Other)
  Sender: FDA-Public Use
  Company Number: US-PFIZER INC-2017384737

PATIENT
  Age: 11 Year
  Sex: Male

DRUGS (2)
  1. GENOTROPIN [Suspect]
     Active Substance: SOMATROPIN
     Indication: HYPOPITUITARISM
     Dosage: 1 MG, DAILY
     Dates: start: 201511
  2. GENOTROPIN [Suspect]
     Active Substance: SOMATROPIN
     Dosage: 1.2 MG, 1X/DAY (EACH NIGHT)

REACTIONS (4)
  - Product dose omission [Unknown]
  - Abnormal behaviour [Unknown]
  - Septo-optic dysplasia [Unknown]
  - Device issue [Unknown]

NARRATIVE: CASE EVENT DATE: 20170903
